FAERS Safety Report 18324019 (Version 1)
Quarter: 2020Q3

REPORT INFORMATION
  Report Type: Spontaneous
  Country: CN (occurrence: CN)
  Receive Date: 20200929
  Receipt Date: 20200929
  Transmission Date: 20201103
  Serious: Yes (Other)
  Sender: FDA-Public Use
  Company Number: CN-OTSUKA-2020_017682

PATIENT
  Age: 77 Year
  Sex: Female

DRUGS (1)
  1. DACOGEN [Suspect]
     Active Substance: DECITABINE
     Indication: ACUTE MYELOID LEUKAEMIA
     Dosage: DAY 1?5 (25 MG)
     Route: 042

REACTIONS (7)
  - Mucosal haemorrhage [Recovering/Resolving]
  - Skin haemorrhage [Recovering/Resolving]
  - Myelosuppression [Unknown]
  - Product prescribing error [Unknown]
  - Respiratory tract infection [Recovering/Resolving]
  - Urinary tract infection [Recovering/Resolving]
  - Off label use [Unknown]
